FAERS Safety Report 21447407 (Version 7)
Quarter: 2024Q2

REPORT INFORMATION
  Report Type: Report from Study
  Country: CA (occurrence: CA)
  Receive Date: 20221012
  Receipt Date: 20240415
  Transmission Date: 20240716
  Serious: Yes (Other)
  Sender: FDA-Public Use
  Company Number: CA-TAKEDA-2022TUS071642

PATIENT
  Age: 53 Year
  Sex: Male

DRUGS (6)
  1. VEDOLIZUMAB [Suspect]
     Active Substance: VEDOLIZUMAB
     Indication: Crohn^s disease
     Dosage: 300 MILLIGRAM
     Route: 042
     Dates: start: 20220407
  2. VEDOLIZUMAB [Suspect]
     Active Substance: VEDOLIZUMAB
     Dosage: 300 MILLIGRAM, Q4WEEKS
     Route: 042
     Dates: start: 20240409
  3. Cortiment [Concomitant]
     Dosage: UNK
  4. ESCITALOPRAM [Concomitant]
     Active Substance: ESCITALOPRAM OXALATE
     Dosage: 10 MILLIGRAM
     Route: 048
  5. QUETIAPINE [Concomitant]
     Active Substance: QUETIAPINE
     Dosage: 25 MILLIGRAM
     Route: 048
  6. RISPERIDONE [Concomitant]
     Active Substance: RISPERIDONE
     Dosage: 0.25 MILLIGRAM
     Route: 048

REACTIONS (10)
  - Intestinal stenosis [Unknown]
  - Intestinal obstruction [Unknown]
  - Crohn^s disease [Unknown]
  - Frequent bowel movements [Unknown]
  - Defaecation urgency [Unknown]
  - Abdominal discomfort [Unknown]
  - Diarrhoea [Unknown]
  - Off label use [Unknown]
  - Arthralgia [Unknown]
  - Nausea [Unknown]

NARRATIVE: CASE EVENT DATE: 20240409
